FAERS Safety Report 7761833-7 (Version None)
Quarter: 2011Q3

REPORT INFORMATION
  Report Type: 
  Country: None (occurrence: None)
  Receive Date: 20110920
  Receipt Date: 20110914
  Transmission Date: 20111222
  Serious: Yes (Other)
  Sender: FDA-Public Use
  Company Number: NL-PFIZER INC-2011208100

PATIENT
  Age: 69 Year
  Sex: Female

DRUGS (4)
  1. GABAPENTIN [Suspect]
     Indication: POLYNEUROPATHY
     Dosage: 300 INCREASE TO 3600 MG OVER 2 WEEKS
  2. GABAPENTIN [Suspect]
     Indication: PARAESTHESIA
  3. PACLITAXEL [Concomitant]
  4. CARBOPLATIN [Concomitant]

REACTIONS (1)
  - FALL [None]
